FAERS Safety Report 17652378 (Version 1)
Quarter: 2020Q2

REPORT INFORMATION
  Report Type: Spontaneous
  Country: US (occurrence: US)
  Receive Date: 20200409
  Receipt Date: 20200409
  Transmission Date: 20200713
  Serious: Yes (Other)
  Sender: FDA-Public Use
  Company Number: US-ABBVIE-20K-163-3352210-00

PATIENT
  Age: 65 Year
  Sex: Male
  Weight: 79.45 kg

DRUGS (8)
  1. DUOPA [Suspect]
     Active Substance: CARBIDOPA\LEVODOPA
     Indication: PARKINSON^S DISEASE
     Route: 050
     Dates: start: 201610
  2. TRAMADOL. [Concomitant]
     Active Substance: TRAMADOL
     Indication: PAIN
     Dosage: AT BEDTIME
     Route: 048
  3. LYRICA [Concomitant]
     Active Substance: PREGABALIN
     Indication: MUSCLE SPASMS
  4. ASPIRIN. [Concomitant]
     Active Substance: ASPIRIN
     Indication: PROPHYLAXIS
     Route: 048
  5. VITAMIN B12 [Concomitant]
     Active Substance: CYANOCOBALAMIN
     Indication: VITAMIN SUPPLEMENTATION
  6. AMANTADINE. [Concomitant]
     Active Substance: AMANTADINE HYDROCHLORIDE
     Indication: PARKINSON^S DISEASE
     Route: 048
  7. TIZANIDINE. [Concomitant]
     Active Substance: TIZANIDINE
     Indication: MUSCLE RELAXANT THERAPY
  8. CLONAZEPAM. [Concomitant]
     Active Substance: CLONAZEPAM
     Indication: SLEEP DISORDER THERAPY
     Dosage: AT BEDTIME

REACTIONS (12)
  - Aphasia [Recovered/Resolved]
  - Hypersomnia [Not Recovered/Not Resolved]
  - Urinary tract infection [Recovering/Resolving]
  - Mobility decreased [Not Recovered/Not Resolved]
  - Prostatic specific antigen abnormal [Not Recovered/Not Resolved]
  - Dehydration [Recovered/Resolved]
  - Biopsy prostate [Recovered/Resolved]
  - Injection site haemorrhage [Not Recovered/Not Resolved]
  - Prostate cancer [Not Recovered/Not Resolved]
  - Gait disturbance [Recovered/Resolved]
  - Prostate infection [Not Recovered/Not Resolved]
  - Rash [Recovered/Resolved]

NARRATIVE: CASE EVENT DATE: 2016
